FAERS Safety Report 4457312-5 (Version None)
Quarter: 2004Q3

REPORT INFORMATION
  Report Type: 
  Country: None (occurrence: None)
  Receive Date: 20040922
  Receipt Date: 20040910
  Transmission Date: 20050211
  Serious: Yes (Disabling)
  Sender: FDA-Public Use
  Company Number: 04P-163-0272941-00

PATIENT
  Age: 52 Year
  Sex: Female
  Weight: 132.4503 kg

DRUGS (4)
  1. VICODIN [Suspect]
     Indication: PAIN
     Dates: start: 20040801
  2. HYDROCHLOROTHIAZIDE/LISINOPRIL [Suspect]
     Indication: HYPERTENSION
     Dosage: 20/12.5 MG, ORAL
     Route: 048
     Dates: start: 20040501, end: 20040808
  3. CARBAMAZEPINE [Concomitant]
  4. PARACETAMOL [Concomitant]

REACTIONS (10)
  - BALANCE DISORDER [None]
  - DIFFICULTY IN WALKING [None]
  - DRUG HYPERSENSITIVITY [None]
  - HYPOAESTHESIA [None]
  - PAIN [None]
  - PRURITUS [None]
  - PYREXIA [None]
  - RASH ERYTHEMATOUS [None]
  - RASH PRURITIC [None]
  - RHABDOMYOLYSIS [None]
